FAERS Safety Report 7681184-9 (Version None)
Quarter: 2011Q3

REPORT INFORMATION
  Report Type: 
  Country: None (occurrence: None)
  Receive Date: 20110812
  Receipt Date: 20110804
  Transmission Date: 20111222
  Serious: Yes (Other)
  Sender: FDA-Public Use
  Company Number: US-JNJFOC-2010029019

PATIENT
  Sex: Female
  Weight: 121.56 kg

DRUGS (16)
  1. ROLAIDS [Suspect]
     Indication: DYSPEPSIA
     Dosage: DAILY DOSE TEXT: TWO AS NEEDED
     Route: 048
     Dates: start: 20101001, end: 20101209
  2. GAS X [Suspect]
     Indication: FLATULENCE
     Route: 065
  3. INSULIN [Concomitant]
     Indication: DIABETES MELLITUS
     Dosage: DAILY DOSE TEXT: REGULAR INSULIN SLIDING SCALE AS NEEDED
     Route: 065
  4. REGLAN [Concomitant]
     Indication: ABDOMINAL DISCOMFORT
     Dosage: DAILY DOSE TEXT: TWICE A DAY
     Route: 065
  5. RISPERDAL [Concomitant]
     Indication: PRODUCT USED FOR UNKNOWN INDICATION
     Route: 048
  6. CLONIDINE HCL [Concomitant]
     Indication: PRODUCT USED FOR UNKNOWN INDICATION
     Route: 048
  7. HUMULIN 70/30 [Concomitant]
     Indication: DIABETES MELLITUS
     Dosage: DAILY DOSE TEXT: TWICE A DAY
     Route: 065
  8. Q-VAR INHALER [Concomitant]
     Indication: ASTHMA
     Dosage: DAILY DOSE TEXT: TWO PUFFS DAILY
     Route: 055
  9. COGENTIN [Concomitant]
     Indication: PRODUCT USED FOR UNKNOWN INDICATION
  10. GAS X [Suspect]
     Indication: DYSPEPSIA
     Route: 065
  11. MAALOX [Suspect]
     Indication: FLATULENCE
  12. ROLAIDS [Suspect]
     Indication: FLATULENCE
     Dosage: DAILY DOSE TEXT: TWO AS NEEDED
     Route: 048
     Dates: start: 20101001, end: 20101209
  13. MAALOX [Suspect]
     Indication: DYSPEPSIA
  14. LISINOPRIL [Concomitant]
     Indication: HYPERTENSION
     Dosage: DAILY DOSE TEXT: ONCE A DAY
     Route: 065
  15. PROAIR HFA [Concomitant]
     Indication: ASTHMA
     Dosage: DAILY DOSE TEXT: TWO PUFFS 2-4 TIMES A DAY
     Route: 055
  16. ZOLOFT [Concomitant]
     Indication: DEPRESSION
     Dosage: DAILY DOSE TEXT: ONE 100 MG TABLET DAILY
     Route: 065

REACTIONS (16)
  - VOMITING [None]
  - DECREASED APPETITE [None]
  - DRUG INEFFECTIVE [None]
  - HEADACHE [None]
  - ASTHENIA [None]
  - HYPERHIDROSIS [None]
  - EXPIRED DRUG ADMINISTERED [None]
  - CHEST PAIN [None]
  - ABDOMINAL DISTENSION [None]
  - BLOOD PRESSURE INCREASED [None]
  - INSOMNIA [None]
  - GASTROINTESTINAL INFECTION [None]
  - DYSPNOEA [None]
  - DEHYDRATION [None]
  - IMPAIRED WORK ABILITY [None]
  - PRODUCT QUALITY ISSUE [None]
